FAERS Safety Report 15898977 (Version 1)
Quarter: 2019Q1

REPORT INFORMATION
  Report Type: Spontaneous
  Country: PL (occurrence: PL)
  Receive Date: 20190201
  Receipt Date: 20190201
  Transmission Date: 20190417
  Serious: Yes (Other)
  Sender: FDA-Public Use
  Company Number: PL-SUN PHARMACEUTICAL INDUSTRIES LTD-2019RR-197326

PATIENT
  Sex: Male

DRUGS (1)
  1. KLABAX 500 MG TABLETS [Suspect]
     Active Substance: CLARITHROMYCIN
     Indication: PRODUCT USED FOR UNKNOWN INDICATION
     Dosage: 500 MILLIGRAM
     Route: 065

REACTIONS (4)
  - Vomiting [Unknown]
  - Vertigo [Unknown]
  - Chest pain [Unknown]
  - Diarrhoea [Unknown]
